FAERS Safety Report 10187067 (Version 1)
Quarter: 2014Q2

REPORT INFORMATION
  Report Type: Report from Study
  Country: AR (occurrence: AR)
  Receive Date: 20140522
  Receipt Date: 20140522
  Transmission Date: 20141212
  Serious: Yes (Death)
  Sender: FDA-Public Use
  Company Number: AR-BRISTOL-MYERS SQUIBB COMPANY-20756037

PATIENT
  Age: 57 Year
  Sex: Female

DRUGS (1)
  1. IXEMPRA [Suspect]
     Dosage: 1DF: 45 MG AND 15MG
     Dates: start: 20131010

REACTIONS (1)
  - Death [Fatal]
